FAERS Safety Report 23056866 (Version 1)
Quarter: 2023Q4

REPORT INFORMATION
  Report Type: Spontaneous
  Country: US (occurrence: US)
  Receive Date: 20231012
  Receipt Date: 20231012
  Transmission Date: 20240110
  Serious: Yes (Hospitalization, Other)
  Sender: FDA-Public Use
  Company Number: US-ELI_LILLY_AND_COMPANY-US202310002713

PATIENT
  Sex: Female

DRUGS (2)
  1. HUMALOG [Suspect]
     Active Substance: INSULIN LISPRO
     Indication: Product used for unknown indication
     Dosage: UNK UNK, UNKNOWN
     Route: 065
     Dates: start: 2018
  2. LANTUS [Suspect]
     Active Substance: INSULIN GLARGINE
     Indication: Diabetes mellitus
     Dosage: UNK UNK, UNKNOWN
     Route: 065

REACTIONS (14)
  - Colitis [Unknown]
  - Loss of consciousness [Unknown]
  - Memory impairment [Unknown]
  - Feeling abnormal [Unknown]
  - Depressed mood [Unknown]
  - Stress [Unknown]
  - Dizziness [Unknown]
  - Fall [Unknown]
  - Humerus fracture [Unknown]
  - Weight increased [Unknown]
  - Weight decreased [Unknown]
  - Abdominal discomfort [Unknown]
  - Feeling hot [Unknown]
  - Hyperhidrosis [Unknown]

NARRATIVE: CASE EVENT DATE: 20220101
